FAERS Safety Report 16255975 (Version 2)
Quarter: 2019Q2

REPORT INFORMATION
  Report Type: Spontaneous
  Country: US (occurrence: US)
  Receive Date: 20190430
  Receipt Date: 20190516
  Transmission Date: 20190711
  Serious: No
  Sender: FDA-Public Use
  Company Number: US-PFIZER INC-2019180004

PATIENT
  Age: 56 Year
  Sex: Female

DRUGS (1)
  1. IBRANCE [Suspect]
     Active Substance: PALBOCICLIB
     Dosage: 125 MG, CYCLIC (TAKE 1 CAPSULE BY MOUTH DAILY FOR 21 DAYS WITH 7 DAYS OFF OF A 28 DAY CYCLE)
     Route: 048

REACTIONS (4)
  - Nausea [Unknown]
  - Product dose omission [Unknown]
  - Fatigue [Unknown]
  - Vomiting [Unknown]
